FAERS Safety Report 9939471 (Version 1)
Quarter: 2014Q1

REPORT INFORMATION
  Report Type: Report from Study
  Country: US (occurrence: US)
  Receive Date: 20140303
  Receipt Date: 20140303
  Transmission Date: 20141002
  Serious: No
  Sender: FDA-Public Use
  Company Number: US-ABBVIE-13P-163-1036790-00

PATIENT
  Age: 37 Year
  Sex: Female
  Weight: 108.51 kg

DRUGS (3)
  1. HUMIRA [Suspect]
     Indication: PSORIASIS
     Dates: end: 201209
  2. HUMIRA [Suspect]
     Indication: PSORIATIC ARTHROPATHY
  3. PRENATAL VITAMINS [Concomitant]
     Indication: PRODUCT USED FOR UNKNOWN INDICATION
     Dates: start: 201205

REACTIONS (4)
  - Bronchitis [Not Recovered/Not Resolved]
  - Psoriasis [Not Recovered/Not Resolved]
  - Joint lock [Not Recovered/Not Resolved]
  - Joint lock [Not Recovered/Not Resolved]
